FAERS Safety Report 9214038 (Version 1)
Quarter: 2013Q2

REPORT INFORMATION
  Report Type: Spontaneous
  Country: US (occurrence: US)
  Receive Date: 20130405
  Receipt Date: 20130405
  Transmission Date: 20140414
  Serious: No
  Sender: FDA-Public Use
  Company Number: US-PFIZER INC-2013106791

PATIENT
  Age: 68 Year
  Sex: Female
  Weight: 72.56 kg

DRUGS (1)
  1. ADVIL [Suspect]
     Indication: MUSCLE SPASMS
     Dosage: 200 MG, AS NEEDED

REACTIONS (3)
  - Expired drug administered [Unknown]
  - Drug ineffective [Unknown]
  - Constipation [Unknown]
